FAERS Safety Report 13857011 (Version 1)
Quarter: 2017Q3

REPORT INFORMATION
  Report Type: Spontaneous
  Country: US (occurrence: US)
  Receive Date: 20170810
  Receipt Date: 20170810
  Transmission Date: 20171127
  Serious: Yes (Life-Threatening, Hospitalization)
  Sender: FDA-Public Use
  Company Number: US-ROCHE-1300655

PATIENT
  Age: 4 Year
  Sex: Male

DRUGS (3)
  1. CEFDINIR. [Concomitant]
     Active Substance: CEFDINIR
  2. OMNICEF (UNITED STATES) [Concomitant]
  3. TAMIFLU [Suspect]
     Active Substance: OSELTAMIVIR PHOSPHATE
     Indication: INFLUENZA
     Route: 065

REACTIONS (2)
  - Urticaria [Unknown]
  - Hypersensitivity [Unknown]

NARRATIVE: CASE EVENT DATE: 20130222
